FAERS Safety Report 14299187 (Version 3)
Quarter: 2018Q1

REPORT INFORMATION
  Report Type: Spontaneous
  Country: JP (occurrence: JP)
  Receive Date: 20171218
  Receipt Date: 20180306
  Transmission Date: 20180509
  Serious: Yes (Life-Threatening, Hospitalization, Other)
  Sender: FDA-Public Use
  Company Number: JP-CONCORDIA PHARMACEUTICALS INC.-E2B_00008792

PATIENT
  Age: 38 Year
  Sex: Female
  Weight: 75.5 kg

DRUGS (6)
  1. VINCRISTINE [Suspect]
     Active Substance: VINCRISTINE
     Indication: B-CELL LYMPHOMA
     Dosage: EVERY 21 DAYS; CYCLICAL; (DA)-EPOCH-R THERAPY
  2. DOXORUBICIN [Suspect]
     Active Substance: DOXORUBICIN
     Indication: B-CELL LYMPHOMA
     Dosage: EVERY 21 DAYS; DAY 1- 4; CYCLICAL;  (DA)-EPOCH-R THERAPY
  3. CYCLOPHOSPHAMIDE. [Suspect]
     Active Substance: CYCLOPHOSPHAMIDE
     Indication: B-CELL LYMPHOMA
     Dosage: EVERY 21 DAYS; DAY 5; CYCLICAL; (DA)-EPOCH-R THERAPY
  4. ETOPOSIDE. [Suspect]
     Active Substance: ETOPOSIDE
     Indication: B-CELL LYMPHOMA
     Dosage: 24 HR CONTINUOUS DRIP INFUSION, DAY 1-4, EVERY 21 DAYS; CYCLICAL;  (DA)-EPOCH-R THERAPY
     Route: 041
  5. RITUXIMAB. [Suspect]
     Active Substance: RITUXIMAB
     Indication: B-CELL LYMPHOMA
     Dosage: DAY 6, EVERY 21 DAYS; CYCLICAL;  (DA)-EPOCH-R THERAPY
  6. PREDNISOLONE. [Suspect]
     Active Substance: PREDNISOLONE
     Indication: B-CELL LYMPHOMA
     Dosage: 200 MG / BODY DAYS 1 TO 5

REACTIONS (3)
  - Drug ineffective [Unknown]
  - Condition aggravated [Unknown]
  - Drug resistance [Unknown]
